FAERS Safety Report 23427984 (Version 2)
Quarter: 2024Q1

REPORT INFORMATION
  Report Type: Report from Study
  Country: TH (occurrence: TH)
  Receive Date: 20240122
  Receipt Date: 20240311
  Transmission Date: 20240410
  Serious: Yes (Other)
  Sender: FDA-Public Use
  Company Number: TH-BAYER-2024A010998

PATIENT
  Age: 67 Year
  Sex: Male

DRUGS (2)
  1. STIVARGA [Suspect]
     Active Substance: REGORAFENIB
     Indication: Gastrointestinal stromal tumour
     Dosage: 80 MG, BID
     Route: 048
     Dates: start: 20230316, end: 20230318
  2. STIVARGA [Suspect]
     Active Substance: REGORAFENIB
     Indication: Gastrointestinal stromal tumour
     Dosage: 40 MG, QD
     Route: 048
     Dates: start: 20230319

REACTIONS (5)
  - Pain in extremity [Recovering/Resolving]
  - Gait disturbance [Recovering/Resolving]
  - Eating disorder [Recovering/Resolving]
  - Oral pain [Recovering/Resolving]
  - Off label use [None]

NARRATIVE: CASE EVENT DATE: 20230301
